FAERS Safety Report 13716546 (Version 1)
Quarter: 2017Q3

REPORT INFORMATION
  Report Type: Spontaneous
  Country: US (occurrence: US)
  Receive Date: 20170705
  Receipt Date: 20170705
  Transmission Date: 20171127
  Serious: No
  Sender: FDA-Public Use
  Company Number: US-BIOGEN-2007BI016014

PATIENT
  Age: 46 Year
  Sex: Female

DRUGS (1)
  1. TYSABRI [Suspect]
     Active Substance: NATALIZUMAB
     Indication: MULTIPLE SCLEROSIS
     Route: 042
     Dates: start: 20070514, end: 20070726

REACTIONS (9)
  - Nausea [Recovered/Resolved]
  - Depression [Recovered/Resolved]
  - Hypersensitivity [Recovered/Resolved]
  - Gait disturbance [Recovered/Resolved]
  - Fall [Recovered/Resolved]
  - Dizziness [Recovered/Resolved]
  - Scratch [Unknown]
  - Skin abrasion [Unknown]
  - Haemorrhage [Unknown]

NARRATIVE: CASE EVENT DATE: 20070514
